FAERS Safety Report 21378240 (Version 1)
Quarter: 2022Q3

REPORT INFORMATION
  Report Type: Spontaneous
  Country: US (occurrence: US)
  Receive Date: 20220927
  Receipt Date: 20220927
  Transmission Date: 20221027
  Serious: Yes (Hospitalization, Other)
  Sender: FDA-Public Use
  Company Number: US-SUN PHARMACEUTICAL INDUSTRIES LTD-2022R1-355844

PATIENT
  Age: 8 Year
  Sex: Female
  Weight: 26 kg

DRUGS (1)
  1. AMLODIPINE [Suspect]
     Active Substance: AMLODIPINE BESYLATE
     Indication: Product used for unknown indication
     Dosage: 4 TABLETS
     Route: 048

REACTIONS (5)
  - Product dispensing error [Unknown]
  - Medication error [Unknown]
  - Sinus tachycardia [Recovered/Resolved]
  - Overdose [Unknown]
  - Toxicity to various agents [Unknown]
